FAERS Safety Report 5013904-6 (Version None)
Quarter: 2006Q2

REPORT INFORMATION
  Report Type: 
  Country: None (occurrence: None)
  Receive Date: 20060530
  Receipt Date: 20060209
  Transmission Date: 20061013
  Serious: Yes (Other)
  Sender: FDA-Public Use
  Company Number: JP-ROCHE-438503

PATIENT
  Age: 10 Year
  Sex: Male
  Weight: 30 kg

DRUGS (3)
  1. TAMIFLU [Suspect]
     Dosage: REPORTED AS DRY SYRUP.
     Route: 048
     Dates: start: 20060123, end: 20060123
  2. TAMIFLU [Suspect]
     Route: 048
     Dates: start: 20060124
  3. OPISEZOL CODEINE [Concomitant]
     Route: 048
     Dates: start: 20060123, end: 20060127

REACTIONS (1)
  - CONVULSION [None]
